FAERS Safety Report 12919424 (Version 3)
Quarter: 2018Q1

REPORT INFORMATION
  Report Type: Report from Study
  Country: CN (occurrence: CN)
  Receive Date: 20161108
  Receipt Date: 20180115
  Transmission Date: 20180508
  Serious: Yes (Hospitalization)
  Sender: FDA-Public Use
  Company Number: CN-ROCHE-1845823

PATIENT
  Age: 50 Year
  Sex: Female
  Weight: 53 kg

DRUGS (42)
  1. FRUCTOSE DIPHOSPHATE SODIUM [Concomitant]
     Route: 065
     Dates: start: 20160912, end: 20160920
  2. PALONOSETRON HYDROCHLORIDE. [Concomitant]
     Active Substance: PALONOSETRON HYDROCHLORIDE
     Route: 065
     Dates: start: 20160928, end: 20160928
  3. ESOMEPRAZOLE [Concomitant]
     Active Substance: ESOMEPRAZOLE
     Route: 065
     Dates: start: 20161019, end: 20161019
  4. CALCIUM GLUCONATE. [Concomitant]
     Active Substance: CALCIUM GLUCONATE
     Route: 065
     Dates: start: 20161019, end: 20161019
  5. ADENOSINE MONOPHOSPHATE [Concomitant]
     Dosage: CYCLIC
     Route: 065
     Dates: start: 20161020, end: 20161020
  6. DEXAMETHASONE ACETATE [Concomitant]
     Active Substance: DEXAMETHASONE ACETATE
     Route: 065
     Dates: start: 20161018, end: 20161019
  7. EPIRUBICIN HYDROCHLORIDE. [Suspect]
     Active Substance: EPIRUBICIN HYDROCHLORIDE
     Indication: HER-2 POSITIVE BREAST CANCER
     Dosage: DATE OF MOST RECENT DOSE OF EPIRUBICIN (140 MG) PRIOR TO EVENT CHEST TIGHTNESS IN DISPUTE: 19/OCT/20
     Route: 042
     Dates: start: 20160928
  8. COMPOUND SODIUM CHLORIDE [Concomitant]
     Route: 065
     Dates: start: 20160912, end: 20160920
  9. MONOSIALOTETRAHEXOSYLGANGLIOSIDE SODIUM [Concomitant]
     Route: 065
     Dates: start: 20160912, end: 20160920
  10. ESOMEPRAZOLE [Concomitant]
     Active Substance: ESOMEPRAZOLE
     Route: 065
     Dates: start: 20160928, end: 20160928
  11. GLUTATHIONE [Concomitant]
     Active Substance: GLUTATHIONE
     Route: 065
     Dates: start: 20160912, end: 20160920
  12. PLACEBO [Suspect]
     Active Substance: UNSPECIFIED INGREDIENT
     Dosage: DATE OF MOST RECENT DOSE OF PERTUZUMAB PRIOR TO EVENT CHEST TIGHTNESS IN DISPUTE: 17/AUG/2016, CYCLE
     Route: 042
  13. DEXRAZOXANE. [Concomitant]
     Active Substance: DEXRAZOXANE
     Route: 065
     Dates: start: 20160928, end: 20160928
  14. LEVOCARNITINE. [Concomitant]
     Active Substance: LEVOCARNITINE
     Route: 065
     Dates: start: 20161021, end: 20161023
  15. TRASTUZUMAB. [Suspect]
     Active Substance: TRASTUZUMAB
     Indication: HER-2 POSITIVE BREAST CANCER
     Dosage: LOADING DOSE
     Route: 042
     Dates: start: 20160615, end: 20160615
  16. DOCETAXEL. [Suspect]
     Active Substance: DOCETAXEL
     Indication: HER-2 POSITIVE BREAST CANCER
     Dosage: DATE OF MOST RECENT DOSE OF DOCETAXEL PRIOR TO EVENT CHEST TIGHTNESS IN DISPUTE: 17/AUG/2016
     Route: 042
     Dates: start: 20160615
  17. PALONOSETRON HYDROCHLORIDE. [Concomitant]
     Active Substance: PALONOSETRON HYDROCHLORIDE
     Route: 065
     Dates: start: 20161019, end: 20161019
  18. PEGFILGRASTIM [Concomitant]
     Active Substance: PEGFILGRASTIM
     Route: 065
     Dates: start: 20161020, end: 20161020
  19. PLACEBO [Suspect]
     Active Substance: UNSPECIFIED INGREDIENT
     Indication: HER-2 POSITIVE BREAST CANCER
     Dosage: LOADING DOSE, CYCLE 1
     Route: 042
     Dates: start: 20160615, end: 20160615
  20. NORMAL SALINE [Concomitant]
     Active Substance: SODIUM CHLORIDE
     Route: 065
     Dates: start: 20160913, end: 20160920
  21. CIMETIDINE [Concomitant]
     Active Substance: CIMETIDINE
     Route: 065
     Dates: start: 20160928, end: 20160928
  22. AMIFOSTINE. [Concomitant]
     Active Substance: AMIFOSTINE
     Route: 065
     Dates: start: 20160928, end: 20160928
  23. AMIFOSTINE. [Concomitant]
     Active Substance: AMIFOSTINE
     Route: 065
     Dates: start: 20161019, end: 20161019
  24. ESOMEPRAZOLE [Concomitant]
     Active Substance: ESOMEPRAZOLE
     Route: 065
     Dates: start: 20160929, end: 20160929
  25. ESOMEPRAZOLE [Concomitant]
     Active Substance: ESOMEPRAZOLE
     Route: 065
     Dates: start: 20161020, end: 20161020
  26. GLUTATHIONE [Concomitant]
     Active Substance: GLUTATHIONE
     Dosage: REDUCED GLUTATHIONE FOR INJECTION
     Route: 065
     Dates: start: 20160928, end: 20160928
  27. PEGFILGRASTIM [Concomitant]
     Active Substance: PEGFILGRASTIM
     Route: 065
     Dates: start: 20160930, end: 20160930
  28. TRASTUZUMAB. [Suspect]
     Active Substance: TRASTUZUMAB
     Dosage: DATE OF MOST RECENT DOSE OF TRASTUZUMAB PRIOR TO EVENT CHEST TIGHTNESS IN DISPUTE:17/AUG/2016
     Route: 042
  29. BUDESONIDE. [Concomitant]
     Active Substance: BUDESONIDE
     Route: 065
     Dates: start: 20160913, end: 20160920
  30. DEXAMETHASONE SODIUM PHOSPHATE. [Concomitant]
     Active Substance: DEXAMETHASONE SODIUM PHOSPHATE
     Route: 065
     Dates: start: 20161019, end: 20161019
  31. DEXRAZOXANE. [Concomitant]
     Active Substance: DEXRAZOXANE
     Route: 065
     Dates: start: 20161019, end: 20161019
  32. CALCIUM GLUCONATE. [Concomitant]
     Active Substance: CALCIUM GLUCONATE
     Route: 065
     Dates: start: 20160928, end: 20160928
  33. CYCLOPHOSPHAMIDE. [Suspect]
     Active Substance: CYCLOPHOSPHAMIDE
     Indication: HER-2 POSITIVE BREAST CANCER
     Dosage: DATE OF MOST RECENT DOSE OF CYCLOPHOSPHAMIDE (780 MG) PRIOR TO EVENT CHEST TIGHTNESS IN DISPUTE: 19/
     Route: 042
     Dates: start: 20160928
  34. DEXAMETHASONE SODIUM PHOSPHATE. [Concomitant]
     Active Substance: DEXAMETHASONE SODIUM PHOSPHATE
     Route: 065
     Dates: start: 20160928, end: 20160928
  35. DIPHENHYDRAMINE HYDROCHLORIDE. [Concomitant]
     Active Substance: DIPHENHYDRAMINE HYDROCHLORIDE
     Route: 065
     Dates: start: 20160928, end: 20160928
  36. ONDANSETRON HYDROCHLORIDE. [Concomitant]
     Active Substance: ONDANSETRON HYDROCHLORIDE
     Route: 065
     Dates: start: 20161019, end: 20161019
  37. GLUTATHIONE [Concomitant]
     Active Substance: GLUTATHIONE
     Route: 065
     Dates: start: 20161019, end: 20161019
  38. APREPITANT. [Concomitant]
     Active Substance: APREPITANT
     Route: 065
     Dates: start: 20160928, end: 20160930
  39. APREPITANT. [Concomitant]
     Active Substance: APREPITANT
     Route: 065
     Dates: start: 20161019, end: 20161021
  40. 5-FLUOROURACIL [Suspect]
     Active Substance: FLUOROURACIL
     Indication: HER-2 POSITIVE BREAST CANCER
     Dosage: DATE OF MOST RECENT DOSE OF 5-FLUOROURACIL (780 MG) PRIOR TO EVENT CHEST TIGHTNESS IN DISPUTE: 19/OC
     Route: 042
     Dates: start: 20160928
  41. IPRATROPIUM BROMIDE. [Concomitant]
     Active Substance: IPRATROPIUM BROMIDE
     Route: 065
     Dates: start: 20160913, end: 20160920
  42. ONDANSETRON HYDROCHLORIDE. [Concomitant]
     Active Substance: ONDANSETRON HYDROCHLORIDE
     Route: 065
     Dates: start: 20160928, end: 20160928

REACTIONS (1)
  - Chest discomfort [Recovered/Resolved]

NARRATIVE: CASE EVENT DATE: 20161019
